FAERS Safety Report 10184478 (Version 2)
Quarter: 2015Q3

REPORT INFORMATION
  Report Type: Spontaneous
  Country: DE (occurrence: DE)
  Receive Date: 20140521
  Receipt Date: 20150701
  Transmission Date: 20151125
  Serious: Yes (Hospitalization, Other)
  Sender: FDA-Public Use
  Company Number: DE-BIOGENIDEC-2014BI046983

PATIENT
  Age: 54 Year
  Sex: Male

DRUGS (10)
  1. CITALOPRAM [Concomitant]
     Active Substance: CITALOPRAM HYDROBROMIDE
  2. TOLPERISON [Concomitant]
  3. KATADOLON [Concomitant]
     Active Substance: FLUPIRTINE
  4. PANTOZOL [Concomitant]
     Active Substance: PANTOPRAZOLE SODIUM
  5. TARGIN [Concomitant]
     Active Substance: NALOXONE HYDROCHLORIDE\OXYCODONE HYDROCHLORIDE
  6. AVONEX [Suspect]
     Active Substance: INTERFERON BETA-1A
     Indication: MULTIPLE SCLEROSIS
     Route: 030
     Dates: start: 20110916, end: 201405
  7. TAMSULOSIN [Concomitant]
     Active Substance: TAMSULOSIN
  8. TAVOR [Concomitant]
     Active Substance: LORAZEPAM
  9. IBUPROFEN. [Concomitant]
     Active Substance: IBUPROFEN
  10. ALLOPURINOL. [Concomitant]
     Active Substance: ALLOPURINOL

REACTIONS (2)
  - Post procedural fistula [Recovered/Resolved]
  - Intraneural cyst [Recovered/Resolved]

NARRATIVE: CASE EVENT DATE: 20140505
